FAERS Safety Report 8422902-1 (Version None)
Quarter: 2012Q2

REPORT INFORMATION
  Report Type: 
  Country: None (occurrence: None)
  Receive Date: 20120608
  Receipt Date: 20120530
  Transmission Date: 20120825
  Serious: Yes (Life-Threatening, Hospitalization, Other)
  Sender: FDA-Public Use
  Company Number: US-GLAXOSMITHKLINE-A0967019A

PATIENT
  Age: 9 Year
  Sex: Male
  Weight: 35.5 kg

DRUGS (5)
  1. ALBUTEROL [Concomitant]
  2. ZYRTEC [Concomitant]
     Indication: MULTIPLE ALLERGIES
  3. ADVAIR DISKUS 100/50 [Suspect]
     Indication: ASTHMA
     Route: 055
     Dates: start: 20100907, end: 20101025
  4. ADVAIR DISKUS 100/50 [Suspect]
     Indication: ASTHMA
     Dosage: 1PUFF TWICE PER DAY
     Route: 055
     Dates: start: 20100514, end: 20100907
  5. ALBUTEROL SULFATE [Concomitant]

REACTIONS (30)
  - BRONCHOSPASM [None]
  - COGNITIVE DISORDER [None]
  - VOMITING [None]
  - DYSPNOEA [None]
  - LEARNING DISABILITY [None]
  - PUPILLARY REFLEX IMPAIRED [None]
  - GAIT DISTURBANCE [None]
  - ASPIRATION [None]
  - CHOREA [None]
  - URINARY INCONTINENCE [None]
  - NERVOUS SYSTEM DISORDER [None]
  - CARDIAC ARREST [None]
  - VENTRICULAR FIBRILLATION [None]
  - DEPRESSED LEVEL OF CONSCIOUSNESS [None]
  - CARBON DIOXIDE INCREASED [None]
  - ILL-DEFINED DISORDER [None]
  - ATAXIA [None]
  - IMPULSIVE BEHAVIOUR [None]
  - HYPOXIC-ISCHAEMIC ENCEPHALOPATHY [None]
  - BLOOD PH DECREASED [None]
  - MYDRIASIS [None]
  - CLUMSINESS [None]
  - MOVEMENT DISORDER [None]
  - MEMORY IMPAIRMENT [None]
  - CIRCULATORY COLLAPSE [None]
  - VENTRICULAR TACHYCARDIA [None]
  - SINUS BRADYCARDIA [None]
  - EXECUTIVE DYSFUNCTION [None]
  - DISTURBANCE IN ATTENTION [None]
  - FAECAL INCONTINENCE [None]
